FAERS Safety Report 19376406 (Version 2)
Quarter: 2021Q3

REPORT INFORMATION
  Report Type: Spontaneous
  Country: US (occurrence: US)
  Receive Date: 20210604
  Receipt Date: 20210708
  Transmission Date: 20211014
  Serious: No
  Sender: FDA-Public Use
  Company Number: US-PFIZER INC-2021525015

PATIENT
  Age: 18 Year
  Sex: Female

DRUGS (1)
  1. DEPO?PROVERA [Suspect]
     Active Substance: MEDROXYPROGESTERONE ACETATE
     Indication: CONTRACEPTION
     Dosage: 0.65 ML (104 MG/0.65ML)
     Route: 058

REACTIONS (3)
  - Device occlusion [Unknown]
  - Drug dose omission by device [Unknown]
  - Product administration error [Unknown]
